FAERS Safety Report 8593713-1 (Version None)
Quarter: 2012Q3

REPORT INFORMATION
  Report Type: 
  Country: None (occurrence: None)
  Receive Date: 20120814
  Receipt Date: 20120808
  Transmission Date: 20120928
  Serious: Yes (Hospitalization)
  Sender: FDA-Public Use
  Company Number: JP-VERTEX PHARMACEUTICALS INC.-AE-2012-012037

PATIENT
  Age: 41 Year
  Sex: Female

DRUGS (1)
  1. TELAVIC (TELAPREVIR) [Suspect]
     Route: 048

REACTIONS (1)
  - TOXIC SKIN ERUPTION [None]
